FAERS Safety Report 16451985 (Version 4)
Quarter: 2019Q4

REPORT INFORMATION
  Report Type: Report from Study
  Country: MX (occurrence: MX)
  Receive Date: 20190619
  Receipt Date: 20191223
  Transmission Date: 20200122
  Serious: Yes (Hospitalization, Other)
  Sender: FDA-Public Use
  Company Number: MX-BAYER-2019-116141

PATIENT
  Age: 67 Year
  Sex: Male

DRUGS (1)
  1. NEXAVAR [Suspect]
     Active Substance: SORAFENIB
     Indication: HEPATOCELLULAR CARCINOMA
     Dosage: 200 MG, BID
     Dates: start: 20190412

REACTIONS (8)
  - Oral pain [None]
  - Mouth haemorrhage [None]
  - Abdominal pain upper [Not Recovered/Not Resolved]
  - Chest pain [Recovering/Resolving]
  - Feeding disorder [None]
  - Haemoptysis [Not Recovered/Not Resolved]
  - Off label use [None]
  - Gingival ulceration [Recovering/Resolving]

NARRATIVE: CASE EVENT DATE: 20190412
